FAERS Safety Report 18783632 (Version 1)
Quarter: 2021Q1

REPORT INFORMATION
  Report Type: Spontaneous
  Country: CN (occurrence: CN)
  Receive Date: 20210125
  Receipt Date: 20210125
  Transmission Date: 20210419
  Serious: Yes (Other)
  Sender: FDA-Public Use
  Company Number: CN-BAXTER-2021BAX001473

PATIENT
  Age: 41 Year
  Sex: Female
  Weight: 68 kg

DRUGS (4)
  1. SODIUM CHLORIDE. [Suspect]
     Active Substance: SODIUM CHLORIDE
     Indication: MEDICATION DILUTION
     Dosage: NS + CYCLOPHOSPHAMIDE 1 G
     Route: 041
     Dates: start: 20210112, end: 20210112
  2. PIRARUBICIN HYDROCHLORIDE [Suspect]
     Active Substance: PIRARUBICIN HYDROCHLORIDE
     Indication: BREAST CANCER IN SITU
     Dosage: PIRARUBICIN HYDROCHLOIRDE + 5% GS 100ML
     Route: 041
     Dates: start: 20210111, end: 20210111
  3. GLUCOSE [Suspect]
     Active Substance: DEXTROSE
     Indication: MEDICATION DILUTION
     Dosage: GS + PIRARUBICIN HYDROCHLORIDE 70 MG
     Route: 041
     Dates: start: 20210111, end: 20210111
  4. ENDOXAN [Suspect]
     Active Substance: CYCLOPHOSPHAMIDE
     Indication: BREAST CANCER IN SITU
     Dosage: CYCLOPHOSPHAMIDE + 0.9% NS 100ML
     Route: 041
     Dates: start: 20210112, end: 20210112

REACTIONS (3)
  - Gastrooesophageal reflux disease [Recovering/Resolving]
  - Decreased appetite [Recovering/Resolving]
  - Nausea [Recovering/Resolving]

NARRATIVE: CASE EVENT DATE: 20210112
